FAERS Safety Report 12756400 (Version 3)
Quarter: 2016Q3

REPORT INFORMATION
  Report Type: Spontaneous
  Country: JP (occurrence: JP)
  Receive Date: 20160916
  Receipt Date: 20160929
  Transmission Date: 20161109
  Serious: Yes (Hospitalization, Other)
  Sender: FDA-Public Use
  Company Number: JP-009507513-1609JPN005701

PATIENT
  Age: 68 Year
  Sex: Male

DRUGS (1)
  1. BRIDION [Suspect]
     Active Substance: SUGAMMADEX
     Indication: NEUROMUSCULAR BLOCKADE REVERSAL
     Dosage: 200 MG, QD
     Route: 042

REACTIONS (4)
  - Tachycardia [Unknown]
  - Atrioventricular block complete [Unknown]
  - Anaphylactic shock [Recovering/Resolving]
  - Hypotension [Recovering/Resolving]
